FAERS Safety Report 4692464-3 (Version None)
Quarter: 2005Q2

REPORT INFORMATION
  Report Type: 
  Country: None (occurrence: None)
  Receive Date: 20050613
  Receipt Date: 20050421
  Transmission Date: 20051028
  Serious: Yes (Hospitalization, Other)
  Sender: FDA-Public Use
  Company Number: 2005-00868

PATIENT
  Age: 71 Year
  Sex: Male

DRUGS (1)
  1. VELCADE [Suspect]
     Indication: MULTIPLE MYELOMA
     Dates: start: 20050408, end: 20050414

REACTIONS (9)
  - ASTHENIA [None]
  - BLOOD CREATININE INCREASED [None]
  - BODY TEMPERATURE INCREASED [None]
  - DEHYDRATION [None]
  - FATIGUE [None]
  - FEELING ABNORMAL [None]
  - NAUSEA [None]
  - RENAL FAILURE ACUTE [None]
  - VOMITING [None]
